FAERS Safety Report 6621045-7 (Version None)
Quarter: 2010Q1

REPORT INFORMATION
  Report Type: 
  Country: None (occurrence: None)
  Receive Date: 20100309
  Receipt Date: 20100302
  Transmission Date: 20100710
  Serious: Yes (Congenital Anomaly)
  Sender: FDA-Public Use
  Company Number: A0792564A

PATIENT
  Sex: Female

DRUGS (17)
  1. PAROXETINE HYDROCHLORIDE [Suspect]
     Indication: DEPRESSION
     Dosage: 40MG PER DAY
     Dates: start: 20070131, end: 20070614
  2. TRAZODONE HCL [Concomitant]
     Dates: start: 20070302, end: 20070404
  3. ATENOLOL [Concomitant]
     Dates: start: 20060101, end: 20070101
  4. METRONIDAZOLE [Concomitant]
     Dates: start: 20070730
  5. LEVAQUIN [Concomitant]
     Dates: start: 20070306
  6. CIPROFLOXACIN [Concomitant]
     Dates: start: 20070306
  7. NITROFURANTOIN [Concomitant]
     Dates: start: 20070410
  8. COTRIM [Concomitant]
     Dates: start: 20070413
  9. CYCLOBENZAPRINE [Concomitant]
     Dates: start: 20070306
  10. ZOLOFT [Concomitant]
     Dates: start: 20070520, end: 20071101
  11. CEFUROXIME [Concomitant]
     Dates: start: 20070605
  12. LORATADINE [Concomitant]
     Dates: start: 20070605
  13. PROVENTIL [Concomitant]
     Dates: start: 20070612
  14. PROVENTIL [Concomitant]
     Dates: start: 20070612
  15. VITAMIN TAB [Concomitant]
  16. TERCONAZOLE [Concomitant]
     Dates: start: 20071018
  17. DIGITEK [Concomitant]
     Dates: start: 20071112

REACTIONS (4)
  - ATRIAL SEPTAL DEFECT [None]
  - CONGENITAL ANOMALY [None]
  - CONGENITAL AORTIC STENOSIS [None]
  - DRUG EXPOSURE DURING PREGNANCY [None]
